FAERS Safety Report 17159327 (Version 1)
Quarter: 2019Q4

REPORT INFORMATION
  Report Type: Spontaneous
  Country: US (occurrence: US)
  Receive Date: 20191215
  Receipt Date: 20191215
  Transmission Date: 20200122
  Serious: Yes (Disabling)
  Sender: FDA-Public Use
  Company Number: None

PATIENT
  Age: 14 Year
  Sex: Female
  Weight: 54 kg

DRUGS (4)
  1. BENADRYL [Concomitant]
     Active Substance: DIPHENHYDRAMINE HYDROCHLORIDE
  2. CETAPHIL (AVOBENZONE\OCTOCRYLENE) [Suspect]
     Active Substance: AVOBENZONE\OCTOCRYLENE
     Indication: DRY SKIN PROPHYLAXIS
     Route: 061
     Dates: start: 20191113, end: 20191113
  3. IBUPROFEN. [Concomitant]
     Active Substance: IBUPROFEN
  4. ZYRTEC [Concomitant]
     Active Substance: CETIRIZINE HYDROCHLORIDE

REACTIONS (3)
  - Facial pain [None]
  - Swelling face [None]
  - Erythema [None]

NARRATIVE: CASE EVENT DATE: 20191214
